FAERS Safety Report 19475224 (Version 1)
Quarter: 2021Q2

REPORT INFORMATION
  Report Type: Spontaneous
  Country: US (occurrence: US)
  Receive Date: 20210629
  Receipt Date: 20210629
  Transmission Date: 20210717
  Serious: No
  Sender: FDA-Public Use
  Company Number: US-SA-2021SA206867

PATIENT
  Sex: Female

DRUGS (1)
  1. LANTUS SOLOSTAR [Suspect]
     Active Substance: INSULIN GLARGINE
     Indication: TYPE 2 DIABETES MELLITUS
     Dosage: Q12H (15 IU IN MORNING AND 35 IU IN NIGHT)
     Route: 065

REACTIONS (2)
  - Product preparation error [Unknown]
  - Inappropriate schedule of product administration [Unknown]
